FAERS Safety Report 25441620 (Version 1)
Quarter: 2025Q2

REPORT INFORMATION
  Report Type: Spontaneous
  Country: GB (occurrence: GB)
  Receive Date: 20250616
  Receipt Date: 20250616
  Transmission Date: 20250716
  Serious: Yes (Hospitalization)
  Sender: MYLAN
  Company Number: None

PATIENT
  Sex: Male

DRUGS (12)
  1. APIXABAN [Suspect]
     Active Substance: APIXABAN
     Indication: Atrial fibrillation
     Dosage: 5 MILLIGRAM, BID
     Dates: end: 20250606
  2. APIXABAN [Suspect]
     Active Substance: APIXABAN
     Dosage: 5 MILLIGRAM, BID
     Route: 065
     Dates: end: 20250606
  3. APIXABAN [Suspect]
     Active Substance: APIXABAN
     Dosage: 5 MILLIGRAM, BID
     Route: 065
     Dates: end: 20250606
  4. APIXABAN [Suspect]
     Active Substance: APIXABAN
     Dosage: 5 MILLIGRAM, BID
     Dates: end: 20250606
  5. BISOPROLOL [Concomitant]
     Active Substance: BISOPROLOL
     Indication: Atrial fibrillation
  6. BISOPROLOL [Concomitant]
     Active Substance: BISOPROLOL
     Route: 065
  7. BISOPROLOL [Concomitant]
     Active Substance: BISOPROLOL
     Route: 065
  8. BISOPROLOL [Concomitant]
     Active Substance: BISOPROLOL
  9. SIMVASTATIN [Concomitant]
     Active Substance: SIMVASTATIN
     Indication: Dyslipidaemia
  10. SIMVASTATIN [Concomitant]
     Active Substance: SIMVASTATIN
     Route: 065
  11. SIMVASTATIN [Concomitant]
     Active Substance: SIMVASTATIN
     Route: 065
  12. SIMVASTATIN [Concomitant]
     Active Substance: SIMVASTATIN

REACTIONS (1)
  - Skin reaction [Recovering/Resolving]
